FAERS Safety Report 4711915-9 (Version None)
Quarter: 2005Q2

REPORT INFORMATION
  Report Type: 
  Country: None (occurrence: None)
  Receive Date: 20050629
  Receipt Date: 20050310
  Transmission Date: 20051028
  Serious: No
  Sender: FDA-Public Use
  Company Number: 05P-163-0293525-00

PATIENT
  Age: 41 Year
  Sex: Male
  Weight: 83.9154 kg

DRUGS (3)
  1. HUMIRA [Suspect]
     Indication: PSORIATIC ARTHROPATHY
     Dosage: SEE IMAGE
     Route: 058
     Dates: start: 20030101, end: 20041101
  2. HUMIRA [Suspect]
     Indication: PSORIATIC ARTHROPATHY
     Dosage: SEE IMAGE
     Route: 058
     Dates: start: 20041101
  3. ALPRAZOLAM [Concomitant]

REACTIONS (4)
  - DRUG EFFECT DECREASED [None]
  - PRURITUS [None]
  - URTICARIA [None]
  - VOMITING [None]
